FAERS Safety Report 6268547-3 (Version None)
Quarter: 2009Q3

REPORT INFORMATION
  Report Type: 
  Country: None (occurrence: None)
  Receive Date: 20090713
  Receipt Date: 20090713
  Transmission Date: 20100115
  Serious: Yes (Life-Threatening, Other)
  Sender: FDA-Public Use
  Company Number: None

PATIENT
  Age: 33 Year
  Sex: Male
  Weight: 90.7194 kg

DRUGS (1)
  1. ZICAM [Suspect]
     Indication: SINUS CONGESTION
     Dosage: 1 SPRAY EACH NOSTRIL 4 TIMES DAILY NASAL
     Route: 045
     Dates: start: 20090615, end: 20090616

REACTIONS (7)
  - AGEUSIA [None]
  - ANOSMIA [None]
  - BURNING SENSATION [None]
  - EYE IRRITATION [None]
  - IMPAIRED WORK ABILITY [None]
  - PRODUCT QUALITY ISSUE [None]
  - THROAT IRRITATION [None]
